FAERS Safety Report 5155477-3 (Version None)
Quarter: 2006Q4

REPORT INFORMATION
  Report Type: 
  Country: None (occurrence: None)
  Receive Date: 20061114
  Receipt Date: 20061101
  Transmission Date: 20070319
  Serious: Yes (Hospitalization)
  Sender: FDA-Public Use
  Company Number: 2006BH014411

PATIENT
  Age: 56 Year
  Sex: Female
  Weight: 45.4958 kg

DRUGS (1)
  1. DIANEAL [Suspect]
     Indication: RENAL FAILURE CHRONIC
     Dosage: 5 L; UNK; IP
     Route: 033

REACTIONS (3)
  - CANDIDIASIS [None]
  - FUNGAL PERITONITIS [None]
  - HAEMODIALYSIS [None]
